FAERS Safety Report 9149015 (Version 1)
Quarter: 2013Q1

REPORT INFORMATION
  Report Type: Spontaneous
  Country: US (occurrence: US)
  Receive Date: 20130308
  Receipt Date: 20130308
  Transmission Date: 20140127
  Serious: Yes (Hospitalization)
  Sender: FDA-Public Use
  Company Number: US-EISAI INC-E2020-12064-SPO-US

PATIENT
  Age: 79 Year
  Sex: Female

DRUGS (6)
  1. DONEPEZIL [Suspect]
     Indication: PRODUCT USED FOR UNKNOWN INDICATION
     Route: 048
  2. DONEPEZIL [Suspect]
     Route: 048
  3. MIRTAZAPINE [Suspect]
     Indication: PRODUCT USED FOR UNKNOWN INDICATION
     Route: 048
  4. MIRTAZAPINE [Suspect]
     Route: 048
  5. ESZOPICOLONE [Concomitant]
     Indication: DEPRESSION
     Dosage: 2 MG
     Route: 048
  6. ESZOPICOLONE [Concomitant]
     Indication: ANXIETY

REACTIONS (1)
  - Encephalopathy [Recovered/Resolved]
